FAERS Safety Report 7244177-1 (Version None)
Quarter: 2011Q1

REPORT INFORMATION
  Report Type: 
  Country: None (occurrence: None)
  Receive Date: 20110119
  Receipt Date: 20110119
  Transmission Date: 20110831
  Serious: No
  Sender: FDA-Public Use
  Company Number: None

PATIENT
  Age: 30 Year
  Sex: Female
  Weight: 62.5964 kg

DRUGS (1)
  1. PREDNISONE 1 TO 60 MG GENERIC [Suspect]

REACTIONS (1)
  - OSTEONECROSIS [None]
